FAERS Safety Report 7715323-8 (Version None)
Quarter: 2011Q3

REPORT INFORMATION
  Report Type: 
  Country: None (occurrence: None)
  Receive Date: 20110829
  Receipt Date: 20110824
  Transmission Date: 20111222
  Serious: Yes (Other)
  Sender: FDA-Public Use
  Company Number: US-PFIZER INC-2011196942

PATIENT
  Sex: Male
  Weight: 99.773 kg

DRUGS (4)
  1. CELEBREX [Suspect]
     Indication: BACK PAIN
     Dosage: 200 MG, 1X/DAY
     Route: 048
     Dates: start: 20050101
  2. VENTOLIN HFA [Concomitant]
     Indication: DYSPNOEA
     Dosage: UNK
  3. ACETYLSALICYLIC ACID [Concomitant]
     Dosage: 81 MG, UNK
  4. TAMSULOSIN [Concomitant]
     Dosage: UNK

REACTIONS (1)
  - HYPOTHYROIDISM [None]
